FAERS Safety Report 16610239 (Version 1)
Quarter: 2019Q3

REPORT INFORMATION
  Report Type: Spontaneous
  Country: CA (occurrence: CA)
  Receive Date: 20190722
  Receipt Date: 20190722
  Transmission Date: 20191004
  Serious: Yes (Hospitalization, Disabling, Other)
  Sender: FDA-Public Use
  Company Number: CA-ALLERGAN-1929574US

PATIENT
  Sex: Female
  Weight: 53 kg

DRUGS (1)
  1. FOSFOMYCIN TROMETHAMINE - BP [Suspect]
     Active Substance: FOSFOMYCIN TROMETHAMINE
     Indication: PRODUCT USED FOR UNKNOWN INDICATION
     Dosage: 1 DF, UNKNOWN
     Route: 048

REACTIONS (9)
  - Fatigue [Unknown]
  - Abdominal pain [Unknown]
  - Impaired quality of life [Unknown]
  - Oral discomfort [Unknown]
  - Ageusia [Unknown]
  - Asthenia [Unknown]
  - Amnesia [Unknown]
  - Diarrhoea [Unknown]
  - Haematochezia [Unknown]
